FAERS Safety Report 8021617-1 (Version None)
Quarter: 2012Q1

REPORT INFORMATION
  Report Type: 
  Country: None (occurrence: None)
  Receive Date: 20120104
  Receipt Date: 20120104
  Transmission Date: 20120608
  Serious: Yes (Other)
  Sender: FDA-Public Use
  Company Number: None

PATIENT
  Sex: Male

DRUGS (7)
  1. SENNA [Concomitant]
     Route: 048
  2. ALPRAZOLAM [Concomitant]
     Route: 048
  3. ROBITUSSIN DM SYRUP [Concomitant]
     Route: 048
  4. HYDROCODONE BITARTRATE AND ACETAMINOPHEN [Suspect]
     Indication: PAIN
     Dosage: 1 TO 2 TABLETS AS NEEDED
     Route: 048
     Dates: start: 20111230, end: 20111231
  5. TRAMADOL HCL [Concomitant]
     Route: 048
  6. ZITHROMYCIN [Concomitant]
     Route: 048
  7. CARISOPRODOL [Concomitant]
     Route: 048

REACTIONS (8)
  - ASPIRATION [None]
  - TABLET PHYSICAL ISSUE [None]
  - REGURGITATION [None]
  - DYSPHAGIA [None]
  - PRODUCT SUBSTITUTION ISSUE [None]
  - COUGH [None]
  - DRUG INEFFECTIVE [None]
  - PRODUCT TASTE ABNORMAL [None]
